FAERS Safety Report 6259792-1 (Version None)
Quarter: 2009Q3

REPORT INFORMATION
  Report Type: 
  Country: None (occurrence: None)
  Receive Date: 20090708
  Receipt Date: 20090702
  Transmission Date: 20100115
  Serious: Yes (Hospitalization)
  Sender: FDA-Public Use
  Company Number: NL-B.I. PHARMACEUTICALS,INC./RIDGEFIELD-2009-BP-07821YA

PATIENT
  Sex: Male
  Weight: 80 kg

DRUGS (4)
  1. OMNIC OCAS ORODISPERSABLE CR [Suspect]
     Indication: BENIGN PROSTATIC HYPERPLASIA
     Route: 048
     Dates: start: 20080701, end: 20090101
  2. METOPROLOL TARTRATE [Concomitant]
     Dosage: 25 MG
     Route: 048
  3. CRESTOR [Concomitant]
     Dosage: 10 MG
     Route: 048
  4. PAROXETINE HCL [Concomitant]
     Dosage: 20 MG
     Route: 048

REACTIONS (1)
  - VITRITIS [None]
